FAERS Safety Report 16858358 (Version 2)
Quarter: 2019Q4

REPORT INFORMATION
  Report Type: Spontaneous
  Country: US (occurrence: US)
  Receive Date: 20190926
  Receipt Date: 20191029
  Transmission Date: 20200122
  Serious: Yes (Hospitalization, Other)
  Sender: FDA-Public Use
  Company Number: US-009507513-1909USA008679

PATIENT
  Age: 87 Year
  Sex: Female
  Weight: 52.16 kg

DRUGS (2)
  1. PRINIVIL [Suspect]
     Active Substance: LISINOPRIL
     Dosage: UNK
  2. KEYTRUDA [Suspect]
     Active Substance: PEMBROLIZUMAB
     Indication: GASTRIC CANCER STAGE IV
     Dosage: 200 MILLIGRAM, Q3W
     Route: 042
     Dates: start: 20190519, end: 20190624

REACTIONS (4)
  - Drug hypersensitivity [Unknown]
  - Stevens-Johnson syndrome [Recovered/Resolved]
  - Product use in unapproved indication [Unknown]
  - Inappropriate schedule of product administration [Unknown]

NARRATIVE: CASE EVENT DATE: 20190519
